FAERS Safety Report 11467603 (Version 1)
Quarter: 2015Q3

REPORT INFORMATION
  Report Type: Spontaneous
  Country: FR (occurrence: None)
  Receive Date: 20150903
  Receipt Date: 20150903
  Transmission Date: 20151125
  Serious: Yes (Life-Threatening)
  Sender: FDA-Public Use
  Company Number: CC400268198

PATIENT
  Age: 30 Year
  Sex: Male

DRUGS (1)
  1. POTASSIUM CHLORIDE. [Suspect]
     Active Substance: POTASSIUM CHLORIDE
     Route: 042

REACTIONS (6)
  - Sinus tachycardia [None]
  - Dizziness [None]
  - Cardio-respiratory arrest [None]
  - Hypokalaemia [None]
  - Feeling hot [None]
  - Seizure [None]
